FAERS Safety Report 9516009 (Version 1)
Quarter: 2013Q3

REPORT INFORMATION
  Report Type: Spontaneous
  Country: SA (occurrence: SA)
  Receive Date: 20130911
  Receipt Date: 20130911
  Transmission Date: 20140515
  Serious: Yes (Death, Hospitalization)
  Sender: FDA-Public Use
  Company Number: SA-JNJFOC-20130901856

PATIENT
  Age: 42 Year
  Sex: Male

DRUGS (6)
  1. DARUNAVIR [Suspect]
     Indication: HIV INFECTION
     Route: 065
  2. EMTRICITABINE [Suspect]
     Indication: HIV INFECTION
     Route: 065
  3. TENOFOVIR DISOPROXIL FUMARATE [Suspect]
     Indication: HIV INFECTION
     Route: 065
  4. RITONAVIR [Suspect]
     Indication: HIV INFECTION
     Route: 065
  5. ATOVAQUONE [Concomitant]
     Indication: OPPORTUNISTIC INFECTION PROPHYLAXIS
     Route: 065
  6. CLARITHROMYCIN [Concomitant]
     Indication: OPPORTUNISTIC INFECTION PROPHYLAXIS
     Route: 065

REACTIONS (2)
  - Histiocytosis haematophagic [Fatal]
  - Immune reconstitution inflammatory syndrome [Fatal]
